FAERS Safety Report 7535346-1 (Version None)
Quarter: 2011Q2

REPORT INFORMATION
  Report Type: 
  Country: None (occurrence: None)
  Receive Date: 20110609
  Receipt Date: 20080422
  Transmission Date: 20111010
  Serious: Yes (Hospitalization)
  Sender: FDA-Public Use
  Company Number: PHFR2008GB01313

PATIENT
  Sex: Male

DRUGS (3)
  1. CLOZAPINE [Suspect]
     Dosage: 300 MG, UNK
     Route: 048
  2. QUETIAPINE [Concomitant]
     Dosage: UNKNOWN
  3. CLOZAPINE [Suspect]
     Indication: SCHIZOPHRENIA
     Route: 048
     Dates: start: 20080213

REACTIONS (4)
  - FALL [None]
  - LOWER LIMB FRACTURE [None]
  - HYPOTENSION [None]
  - EMBOLISM [None]
